FAERS Safety Report 5810333-X (Version None)
Quarter: 2008Q3

REPORT INFORMATION
  Report Type: 
  Country: None (occurrence: None)
  Receive Date: 20080715
  Receipt Date: 20080422
  Transmission Date: 20090109
  Serious: No
  Sender: FDA-Public Use
  Company Number: A0724135A

PATIENT
  Age: 45 Year
  Sex: Female

DRUGS (6)
  1. IMITREX [Suspect]
     Indication: MIGRAINE
     Dosage: 50MG AS REQUIRED
     Route: 048
     Dates: start: 19950101
  2. COLAZAL [Concomitant]
  3. MERCAPTOPURINE [Concomitant]
  4. ENTOCORT EC [Concomitant]
  5. ROWASA [Concomitant]
  6. SEASONALE [Concomitant]

REACTIONS (1)
  - HAEMATOCHEZIA [None]
